FAERS Safety Report 7118325-8 (Version None)
Quarter: 2010Q4

REPORT INFORMATION
  Report Type: 
  Country: None (occurrence: None)
  Receive Date: 20101123
  Receipt Date: 20101110
  Transmission Date: 20110411
  Serious: Yes (Hospitalization)
  Sender: FDA-Public Use
  Company Number: PHHY2010AU68808

PATIENT
  Sex: Female

DRUGS (2)
  1. CLOZARIL [Suspect]
     Dosage: 250 MG
     Dates: start: 20061103
  2. CLOPINE [Concomitant]
     Dosage: 250 MG

REACTIONS (2)
  - ANKLE FRACTURE [None]
  - OVERDOSE [None]
